FAERS Safety Report 8003053-7 (Version None)
Quarter: 2011Q4

REPORT INFORMATION
  Report Type: 
  Country: None (occurrence: None)
  Receive Date: 20111222
  Receipt Date: 20111215
  Transmission Date: 20120403
  Serious: Yes (Other)
  Sender: FDA-Public Use
  Company Number: US-ELI_LILLY_AND_COMPANY-US201109007135

PATIENT
  Sex: Female
  Weight: 99.32 kg

DRUGS (6)
  1. HUMULIN 70/30 [Suspect]
     Indication: TYPE 1 DIABETES MELLITUS
     Dosage: 65 U, EACH MORNING
     Route: 065
  2. VITAMIN D [Concomitant]
     Dosage: 50000 U, WEEKLY (1/W)
  3. HUMALOG [Suspect]
     Dosage: 40 U, EACH EVENING
     Route: 065
     Dates: start: 20110621
  4. JANUVIA [Concomitant]
     Dosage: 100 MG, QD
  5. HUMALOG [Suspect]
     Indication: TYPE 1 DIABETES MELLITUS
     Dosage: 40 U, EACH EVENING
     Route: 065
     Dates: start: 20110621
  6. TYLENOL PM [Concomitant]
     Dosage: UNK, PRN

REACTIONS (9)
  - LOSS OF CONSCIOUSNESS [None]
  - BLOOD GLUCOSE INCREASED [None]
  - DRUG DOSE OMISSION [None]
  - OXYGEN SATURATION DECREASED [None]
  - ANAEMIA [None]
  - FATIGUE [None]
  - VISUAL IMPAIRMENT [None]
  - MYOPIA [None]
  - MEMORY IMPAIRMENT [None]
